FAERS Safety Report 17765778 (Version 1)
Quarter: 2020Q2

REPORT INFORMATION
  Report Type: Spontaneous
  Country: US (occurrence: US)
  Receive Date: 20200510
  Receipt Date: 20200510
  Transmission Date: 20200714
  Serious: Yes (Disabling, Other)
  Sender: FDA-Public Use
  Company Number: None

PATIENT
  Age: 46 Year
  Sex: Male
  Weight: 78.75 kg

DRUGS (4)
  1. MULTIVITAMIN [Concomitant]
     Active Substance: VITAMINS
  2. AZITHROMYCIN ANHYDROUS. [Concomitant]
     Active Substance: AZITHROMYCIN ANHYDROUS
  3. AMLODIPINEBESYLATE 5MG [Concomitant]
  4. DIPHENHYDRAMINE HCI CAPSULES, USP 25 MG [Suspect]
     Active Substance: DIPHENHYDRAMINE HYDROCHLORIDE
     Indication: SLEEP DISORDER
     Dosage: ?          QUANTITY:1000 CAPSULE(S);?
     Route: 048
     Dates: start: 20200429, end: 20200501

REACTIONS (5)
  - Gait disturbance [None]
  - Paraesthesia [None]
  - Tremor [None]
  - Muscular weakness [None]
  - Heart rate increased [None]

NARRATIVE: CASE EVENT DATE: 20200429
